FAERS Safety Report 16523736 (Version 2)
Quarter: 2019Q3

REPORT INFORMATION
  Report Type: Spontaneous
  Country: JP (occurrence: JP)
  Receive Date: 20190702
  Receipt Date: 20190726
  Transmission Date: 20191004
  Serious: Yes (Death, Hospitalization, Other)
  Sender: FDA-Public Use
  Company Number: JP-PFIZER INC-2019280982

PATIENT
  Age: 6 Month
  Sex: Female

DRUGS (3)
  1. VIAGRA [Suspect]
     Active Substance: SILDENAFIL CITRATE
     Dosage: UNK
     Dates: start: 20080126, end: 20080128
  2. VIAGRA [Suspect]
     Active Substance: SILDENAFIL CITRATE
     Indication: PULMONARY HYPERTENSION
     Dosage: 1 MG/KG, DAILY
     Dates: start: 20071225, end: 20071228
  3. BOSENTAN. [Concomitant]
     Active Substance: BOSENTAN
     Dosage: UNK, SINGLE
     Route: 048
     Dates: start: 20071228, end: 20071228

REACTIONS (12)
  - Pulmonary oedema [Recovering/Resolving]
  - Acute respiratory distress syndrome [Unknown]
  - Pulmonary hypertension [Fatal]
  - Condition aggravated [Unknown]
  - Product use in unapproved indication [Unknown]
  - Pneumothorax [Unknown]
  - Heart disease congenital [Fatal]
  - Disease progression [Fatal]
  - Interstitial lung disease [Not Recovered/Not Resolved]
  - Pulmonary congestion [Unknown]
  - Chylothorax [Unknown]
  - Off label use [Unknown]

NARRATIVE: CASE EVENT DATE: 20071226
